FAERS Safety Report 4926575-1 (Version None)
Quarter: 2006Q1

REPORT INFORMATION
  Report Type: 
  Country: None (occurrence: None)
  Receive Date: 20060228
  Receipt Date: 20050505
  Transmission Date: 20060701
  Serious: No
  Sender: FDA-Public Use
  Company Number: US-GLAXOSMITHKLINE-A0557295A

PATIENT
  Age: 38 Year
  Sex: Female
  Weight: 56.8 kg

DRUGS (2)
  1. LAMICTAL [Suspect]
     Indication: BIPOLAR DISORDER
     Dosage: 50MG PER DAY
     Route: 048
     Dates: start: 20050419
  2. WELLBUTRIN XL [Concomitant]
     Indication: DEPRESSION
     Dosage: 150MG PER DAY
     Route: 048

REACTIONS (1)
  - HERPES ZOSTER [None]
